FAERS Safety Report 17958581 (Version 1)
Quarter: 2020Q2

REPORT INFORMATION
  Report Type: Spontaneous
  Country: US (occurrence: US)
  Receive Date: 20200630
  Receipt Date: 20200630
  Transmission Date: 20200714
  Serious: Yes (Hospitalization, Disabling, Other)
  Sender: FDA-Public Use
  Company Number: US-ALEMBIC PHARMACUETICALS LIMITED-2020SCAL000277

PATIENT

DRUGS (7)
  1. LAMOTRIGINE. [Suspect]
     Active Substance: LAMOTRIGINE
     Indication: ANXIETY
  2. OXYCODONE [Suspect]
     Active Substance: OXYCODONE
     Dosage: 140 MILLIGRAM, QD
     Route: 048
  3. OXYCODONE [Suspect]
     Active Substance: OXYCODONE
     Indication: ANALGESIC THERAPY
     Dosage: 20 MILLIGRAM, AS NEEDED, AT BEDTIME
     Route: 048
  4. OXYCODONE [Suspect]
     Active Substance: OXYCODONE
     Dosage: 30 MILLIGRAM, QID (IMMEDIATE RELEASE)
     Route: 048
  5. OXYCODONE [Suspect]
     Active Substance: OXYCODONE
     Indication: HEADACHE
     Dosage: 10 MILLIGRAM, EVERY 4 HOURS AS NEEDED
     Route: 048
  6. OXYCODONE [Suspect]
     Active Substance: OXYCODONE
     Dosage: 30 MILLIGRAM, BID (EXTENDED RELEASE)
     Route: 048
  7. LAMOTRIGINE. [Suspect]
     Active Substance: LAMOTRIGINE
     Indication: BIPOLAR DISORDER
     Dosage: 200 MILLIGRAM, OD
     Route: 048

REACTIONS (14)
  - Vomiting [Recovered/Resolved]
  - Impaired work ability [Recovered/Resolved]
  - CSF lymphocyte count abnormal [Recovered/Resolved]
  - Musculoskeletal stiffness [Recovered/Resolved]
  - Pyrexia [Recovered/Resolved]
  - Back pain [Recovered/Resolved]
  - Weight decreased [Recovered/Resolved]
  - Headache [Recovered/Resolved]
  - Photophobia [Recovered/Resolved]
  - Condition aggravated [Recovered/Resolved]
  - Bedridden [Recovered/Resolved]
  - Nausea [Recovered/Resolved]
  - Meningitis aseptic [Recovered/Resolved]
  - Phonophobia [Recovered/Resolved]
